FAERS Safety Report 24107148 (Version 1)
Quarter: 2024Q3

REPORT INFORMATION
  Report Type: Report from Study
  Country: US (occurrence: US)
  Receive Date: 20240718
  Receipt Date: 20240718
  Transmission Date: 20241017
  Serious: Yes (Other)
  Sender: ABBVIE
  Company Number: US-ABBVIE-5836959

PATIENT
  Sex: Female

DRUGS (1)
  1. CREON [Suspect]
     Active Substance: PANCRELIPASE AMYLASE\PANCRELIPASE LIPASE\PANCRELIPASE PROTEASE
     Indication: Pancreatic failure
     Dosage: CREON 36000 UNITS?8 PILLS INDIVIDUAL TOTAL TAKEN 15-20 MINUTES BEFORE PATIENT EATS
     Route: 048
     Dates: start: 20190512

REACTIONS (2)
  - Spinal cord injury [Not Recovered/Not Resolved]
  - Incorrect dose administered [Not Recovered/Not Resolved]
